FAERS Safety Report 7688748-7 (Version None)
Quarter: 2011Q3

REPORT INFORMATION
  Report Type: 
  Country: None (occurrence: None)
  Receive Date: 20110817
  Receipt Date: 20110808
  Transmission Date: 20111222
  Serious: Yes (Disabling)
  Sender: FDA-Public Use
  Company Number: JP-ASTRAZENECA-2011SE43468

PATIENT
  Age: 24 Year
  Sex: Female
  Weight: 45 kg

DRUGS (5)
  1. MONTELUKAST SODIUM [Suspect]
     Indication: ASTHMA
     Route: 048
     Dates: start: 20110622, end: 20110708
  2. HOKUNALIN:TAPE [Suspect]
     Indication: ASTHMA
     Route: 062
     Dates: start: 20110622, end: 20110622
  3. SYMBICORT [Suspect]
     Indication: ASTHMA
     Dosage: 30 DOSES/1 DF TWO TIMES A DAY
     Route: 055
     Dates: start: 20110622, end: 20110722
  4. THEOPHYLLINE [Suspect]
     Indication: ASTHMA
     Route: 048
     Dates: start: 20110629, end: 20110708
  5. ERYTHROCIN LACTOBIONATE [Suspect]
     Indication: ASTHMA
     Route: 048
     Dates: start: 20110706, end: 20110708

REACTIONS (3)
  - MYALGIA [None]
  - MUSCULAR WEAKNESS [None]
  - SENSATION OF HEAVINESS [None]
